FAERS Safety Report 20727729 (Version 1)
Quarter: 2022Q2

REPORT INFORMATION
  Report Type: Spontaneous
  Country: IN (occurrence: IN)
  Receive Date: 20220419
  Receipt Date: 20220419
  Transmission Date: 20220721
  Serious: Yes (Other)
  Sender: FDA-Public Use
  Company Number: IN-PRINSTON PHARMACEUTICAL INC.-2022PRN00128

PATIENT
  Age: 49 Year
  Sex: Female

DRUGS (13)
  1. VORICONAZOLE [Suspect]
     Active Substance: VORICONAZOLE
     Indication: Keratitis fungal
     Dosage: UNK UNK, 1X/HOUR
     Route: 061
  2. VORICONAZOLE [Suspect]
     Active Substance: VORICONAZOLE
     Indication: Fusarium infection
     Dosage: 200 MG, 2X/DAY
     Route: 048
  3. VORICONAZOLE [Suspect]
     Active Substance: VORICONAZOLE
     Dosage: INJECTION
  4. VORICONAZOLE [Suspect]
     Active Substance: VORICONAZOLE
     Dosage: 1 %, 1X/HOUR
     Route: 061
  5. VORICONAZOLE [Suspect]
     Active Substance: VORICONAZOLE
     Dosage: 200 MG, 2X/DAY
     Route: 048
  6. VORICONAZOLE [Suspect]
     Active Substance: VORICONAZOLE
     Dosage: 1 %, 1X/HOUR
     Route: 061
  7. VORICONAZOLE [Suspect]
     Active Substance: VORICONAZOLE
     Dosage: 200 MG, 2X/DAY
     Route: 048
  8. NATAMYCIN [Concomitant]
     Active Substance: NATAMYCIN
     Indication: Keratitis fungal
     Dosage: UNK UNK, 1X/HOUR
     Route: 061
  9. NATAMYCIN [Concomitant]
     Active Substance: NATAMYCIN
     Indication: Fusarium infection
     Dosage: 5 %, 1X/HOUR
     Route: 061
  10. NATAMYCIN [Concomitant]
     Active Substance: NATAMYCIN
     Dosage: 5 %, 1X/HOUR
     Route: 061
  11. NATAMYCIN [Concomitant]
     Active Substance: NATAMYCIN
     Dosage: 5 %
     Route: 061
  12. HOMATROPINE [Concomitant]
     Active Substance: HOMATROPINE HYDROBROMIDE
     Indication: Keratitis fungal
     Dosage: UNK
     Route: 061
  13. HOMATROPINE [Concomitant]
     Active Substance: HOMATROPINE HYDROBROMIDE
     Indication: Fusarium infection

REACTIONS (1)
  - Squamous cell carcinoma [Recovered/Resolved]
